FAERS Safety Report 21926200 (Version 1)
Quarter: 2023Q1

REPORT INFORMATION
  Report Type: Spontaneous
  Country: US (occurrence: US)
  Receive Date: 20230130
  Receipt Date: 20230130
  Transmission Date: 20230417
  Serious: No
  Sender: FDA-Public Use
  Company Number: US-002147023-NVSC2023US017526

PATIENT
  Age: 65 Year
  Sex: Male

DRUGS (2)
  1. LEQVIO [Suspect]
     Active Substance: INCLISIRAN SODIUM
     Indication: Product used for unknown indication
     Dosage: 284 MG, OTHER, (0, 3 MONTH , EVERY 6 MONTH)
     Route: 058
     Dates: start: 20221013
  2. LEQVIO [Suspect]
     Active Substance: INCLISIRAN SODIUM
     Dosage: 284 MG, OTHER, (0, 3 MONTH , EVERY 6 MONTH)
     Route: 058
     Dates: start: 20230116

REACTIONS (3)
  - Dermatitis allergic [Recovering/Resolving]
  - Injection site warmth [Unknown]
  - Injection site pain [Unknown]

NARRATIVE: CASE EVENT DATE: 20221013
